FAERS Safety Report 5580232-X (Version None)
Quarter: 2007Q4

REPORT INFORMATION
  Report Type: 
  Country: None (occurrence: None)
  Receive Date: 20071231
  Receipt Date: 20071231
  Transmission Date: 20080405
  Serious: Yes (Life-Threatening, Hospitalization)
  Sender: FDA-Public Use
  Company Number: None

PATIENT
  Age: 85 Year
  Sex: Female
  Weight: 68 kg

DRUGS (11)
  1. HEPARIN [Suspect]
     Indication: DEEP VEIN THROMBOSIS
     Dosage: PER PROTOCOL
     Dates: start: 20070424, end: 20070427
  2. HEPARIN [Suspect]
     Indication: PULMONARY EMBOLISM
     Dosage: PER PROTOCOL
     Dates: start: 20070424, end: 20070427
  3. WARFARIN SODIUM [Suspect]
     Indication: DEEP VEIN THROMBOSIS
     Dosage: 5MG PO DAILY
     Route: 048
     Dates: start: 20070425, end: 20070426
  4. WARFARIN SODIUM [Suspect]
     Indication: PULMONARY EMBOLISM
     Dosage: 5MG PO DAILY
     Route: 048
     Dates: start: 20070425, end: 20070426
  5. ARICEPT [Concomitant]
  6. GLUCOTROL [Concomitant]
  7. METOPROLOL TARTRATE [Concomitant]
  8. CIPRO [Concomitant]
  9. COZAAR [Concomitant]
  10. NAMENDA [Concomitant]
  11. ALDACTONE [Concomitant]

REACTIONS (5)
  - HAEMATOMA [None]
  - INFUSION RELATED REACTION [None]
  - METABOLIC ACIDOSIS [None]
  - RENAL FAILURE ACUTE [None]
  - RESPIRATORY FAILURE [None]
